FAERS Safety Report 13231807 (Version 1)
Quarter: 2017Q1

REPORT INFORMATION
  Report Type: Spontaneous
  Country: US (occurrence: US)
  Receive Date: 20170214
  Receipt Date: 20170214
  Transmission Date: 20170428
  Serious: Yes (Other)
  Sender: FDA-Public Use
  Company Number: PHEH2017US004392

PATIENT
  Age: 59 Year
  Sex: Female
  Weight: 66.22 kg

DRUGS (4)
  1. BOSULIF [Suspect]
     Active Substance: BOSUTINIB MONOHYDRATE
     Indication: CHEMOTHERAPY
     Dosage: 500 MG, QD
     Route: 065
  2. SPRYCEL [Suspect]
     Active Substance: DASATINIB
     Indication: CHEMOTHERAPY
     Route: 065
  3. TASIGNA [Suspect]
     Active Substance: NILOTINIB
     Indication: PRODUCT USED FOR UNKNOWN INDICATION
     Route: 065
  4. PREDNISONE. [Suspect]
     Active Substance: PREDNISONE
     Indication: PRODUCT USED FOR UNKNOWN INDICATION
     Dosage: UNK
     Route: 065

REACTIONS (11)
  - Jaundice [Unknown]
  - Drug ineffective [Unknown]
  - Liver disorder [Unknown]
  - Speech disorder [Unknown]
  - Cough [Unknown]
  - Diabetes mellitus [Unknown]
  - Sinusitis [Unknown]
  - Pneumonia [Recovered/Resolved]
  - Lung disorder [Unknown]
  - Malaise [Recovering/Resolving]
  - Nasopharyngitis [Unknown]

NARRATIVE: CASE EVENT DATE: 2012
